FAERS Safety Report 7986606-1 (Version None)
Quarter: 2011Q4

REPORT INFORMATION
  Report Type: 
  Country: None (occurrence: None)
  Receive Date: 20111216
  Receipt Date: 20110804
  Transmission Date: 20120403
  Serious: Yes (Other)
  Sender: FDA-Public Use
  Company Number: US-BRISTOL-MYERS SQUIBB COMPANY-15948045

PATIENT
  Age: 52 Year
  Sex: Female
  Weight: 136 kg

DRUGS (2)
  1. ABILIFY [Suspect]
     Indication: DEPRESSION
     Dosage: ABOUT A WEEK OR ABOUT 3 TO 4 DAYS .
  2. EFFEXOR [Suspect]

REACTIONS (2)
  - DEPRESSION [None]
  - CRYING [None]
